FAERS Safety Report 9195203 (Version 1)
Quarter: 2013Q1

REPORT INFORMATION
  Report Type: Spontaneous
  Country: US (occurrence: US)
  Receive Date: 20130328
  Receipt Date: 20130328
  Transmission Date: 20140127
  Serious: No
  Sender: FDA-Public Use
  Company Number: US-ALLERGAN-1302950US

PATIENT
  Age: 26 Year
  Sex: Female

DRUGS (4)
  1. LATISSE 0.03% [Suspect]
     Indication: GROWTH OF EYELASHES
     Dosage: UNK
     Route: 061
     Dates: start: 201208
  2. ASTHMA MEDICATION [Concomitant]
     Indication: ASTHMA
     Dosage: UNK
     Dates: start: 1994
  3. ALLERGY MEDICATION [Concomitant]
     Indication: HYPERSENSITIVITY
     Dosage: UNK
     Dates: start: 1994
  4. PAIN MEDICATION [Concomitant]
     Indication: PAIN
     Dosage: UNK

REACTIONS (7)
  - Incorrect dose administered [Unknown]
  - Inappropriate schedule of drug administration [Unknown]
  - Drug ineffective [Unknown]
  - Trichorrhexis [Unknown]
  - Madarosis [Unknown]
  - Madarosis [Unknown]
  - Madarosis [Unknown]
